FAERS Safety Report 8172204-6 (Version None)
Quarter: 2012Q1

REPORT INFORMATION
  Report Type: 
  Country: None (occurrence: None)
  Receive Date: 20120228
  Receipt Date: 20120223
  Transmission Date: 20120608
  Serious: Yes (Hospitalization)
  Sender: FDA-Public Use
  Company Number: CH-BAXTER-2012BH005214

PATIENT
  Age: 12 Month
  Sex: Female
  Weight: 8 kg

DRUGS (5)
  1. ACETAMINOPHEN [Suspect]
     Indication: PRODUCT USED FOR UNKNOWN INDICATION
     Route: 042
     Dates: start: 20120106, end: 20120107
  2. MEROPENEM [Suspect]
     Indication: PROPHYLACTIC CHEMOTHERAPY
     Route: 042
     Dates: start: 20120106, end: 20120109
  3. DEXTROSE 10% [Suspect]
     Indication: FLUID INTAKE RESTRICTION
     Route: 042
     Dates: start: 20120107, end: 20120107
  4. SODIUM CHLORIDE [Suspect]
     Indication: FLUID INTAKE RESTRICTION
     Route: 042
     Dates: start: 20120107, end: 20120107
  5. POTASSIUM CHLORIDE [Suspect]
     Indication: FLUID INTAKE RESTRICTION
     Route: 042
     Dates: start: 20120107, end: 20120107

REACTIONS (4)
  - EXTRAVASATION [None]
  - OEDEMA PERIPHERAL [None]
  - BURNS THIRD DEGREE [None]
  - INFUSION SITE INDURATION [None]
